FAERS Safety Report 22162315 (Version 1)
Quarter: 2023Q1

REPORT INFORMATION
  Report Type: Report from Study
  Country: IE (occurrence: IE)
  Receive Date: 20230331
  Receipt Date: 20230331
  Transmission Date: 20230417
  Serious: Yes (Other)
  Sender: FDA-Public Use
  Company Number: IE-002147023-NVSC2022IE144649

PATIENT
  Age: 68 Year
  Sex: Male
  Weight: 95.7 kg

DRUGS (1)
  1. COSENTYX [Suspect]
     Active Substance: SECUKINUMAB
     Indication: Psoriasis
     Dosage: 300 MG, QMO
     Route: 065
     Dates: start: 20180502

REACTIONS (1)
  - Nasal polyps [Recovered/Resolved]

NARRATIVE: CASE EVENT DATE: 20220101
